FAERS Safety Report 5509090-6 (Version None)
Quarter: 2007Q4

REPORT INFORMATION
  Report Type: 
  Country: None (occurrence: None)
  Receive Date: 20071026
  Receipt Date: 20070710
  Transmission Date: 20080405
  Serious: Yes (Hospitalization)
  Sender: FDA-Public Use
  Company Number: CLOF-10596

PATIENT
  Age: 71 Year
  Sex: Female

DRUGS (6)
  1. CLOFARABINE. MFR: GENZYME [Suspect]
     Indication: MYELODYSPLASTIC SYNDROME
     Dosage: 30 MG/M2 PO
     Route: 048
     Dates: start: 20070629, end: 20070701
  2. ALLEGRA [Concomitant]
  3. DIFLUCAN [Concomitant]
  4. LEVAQUIN [Concomitant]
  5. PANTOPRAZOLE SODIUM [Concomitant]
  6. OS-CAL [Concomitant]

REACTIONS (3)
  - BLOOD CREATININE INCREASED [None]
  - NEUTROPENIA [None]
  - URINARY TRACT INFECTION [None]
